FAERS Safety Report 24450147 (Version 1)
Quarter: 2024Q4

REPORT INFORMATION
  Report Type: Report from Study
  Country: CN (occurrence: CN)
  Receive Date: 20241017
  Receipt Date: 20241017
  Transmission Date: 20250114
  Serious: Yes (Other)
  Sender: ALEXION PHARMACEUTICALS
  Company Number: CN-ASTRAZENECA-202409GLO005824CN

PATIENT

DRUGS (3)
  1. TICAGRELOR [Suspect]
     Active Substance: TICAGRELOR
     Indication: Drug therapy
     Dosage: LOADING DOSE
  2. TICAGRELOR [Suspect]
     Active Substance: TICAGRELOR
     Dosage: MAINTENANCE DOSE
  3. ASPIRIN [Suspect]
     Active Substance: ASPIRIN
     Indication: Drug therapy
     Dosage: 100 MILLIGRAM, QD

REACTIONS (1)
  - Haemorrhage [Unknown]
